FAERS Safety Report 17242541 (Version 1)
Quarter: 2020Q1

REPORT INFORMATION
  Report Type: Spontaneous
  Country: SE (occurrence: SE)
  Receive Date: 20200107
  Receipt Date: 20200107
  Transmission Date: 20200409
  Serious: Yes (Hospitalization)
  Sender: FDA-Public Use
  Company Number: SE-MYLANLABS-2020M1001462

PATIENT
  Age: 21 Year
  Sex: Male

DRUGS (1)
  1. LERGIGAN (PROMETHAZINE) [Suspect]
     Active Substance: PROMETHAZINE HYDROCHLORIDE
     Indication: PRODUCT USED FOR UNKNOWN INDICATION
     Dosage: 9 X 25 MG=225 MG, SISTA TABLETTEN KL 20
     Route: 048
     Dates: start: 20180416, end: 20180416

REACTIONS (6)
  - Intentional self-injury [Unknown]
  - Opisthotonus [Recovering/Resolving]
  - Tachycardia [Unknown]
  - Dry mouth [Unknown]
  - Extrapyramidal disorder [Unknown]
  - Intentional overdose [Unknown]

NARRATIVE: CASE EVENT DATE: 201804
